FAERS Safety Report 7612175-1 (Version None)
Quarter: 2011Q3

REPORT INFORMATION
  Report Type: 
  Country: None (occurrence: None)
  Receive Date: 20110715
  Receipt Date: 20110706
  Transmission Date: 20111222
  Serious: Yes (Hospitalization)
  Sender: FDA-Public Use
  Company Number: IT-ASTRAZENECA-2011SE34095

PATIENT
  Age: 7264 Day
  Sex: Male

DRUGS (5)
  1. DELORAZEPAM [Suspect]
     Indication: SUICIDE ATTEMPT
     Route: 048
     Dates: start: 20110514, end: 20110514
  2. AUGMENTIN '125' [Suspect]
     Indication: SUICIDE ATTEMPT
     Dosage: 2 G, 875 MG (AMOXICILLIN) + 125 MG (CLAVULANIC ACID)
     Route: 048
     Dates: start: 20110514, end: 20110514
  3. ASPIRIN [Suspect]
     Indication: SUICIDE ATTEMPT
     Route: 048
     Dates: start: 20110514, end: 20110514
  4. SEROQUEL [Suspect]
     Indication: SUICIDE ATTEMPT
     Route: 048
     Dates: start: 20110514, end: 20110514
  5. ACETAMINOPHEN [Concomitant]
     Indication: CHRONIC SINUSITIS
     Route: 048

REACTIONS (5)
  - SUICIDE ATTEMPT [None]
  - BRADYKINESIA [None]
  - SOPOR [None]
  - BRADYPHRENIA [None]
  - INTENTIONAL OVERDOSE [None]
